FAERS Safety Report 10243524 (Version 1)
Quarter: 2014Q2

REPORT INFORMATION
  Report Type: Spontaneous
  Country: US (occurrence: US)
  Receive Date: 20140618
  Receipt Date: 20140618
  Transmission Date: 20141212
  Serious: No
  Sender: FDA-Public Use
  Company Number: US-BAYER-2014-090650

PATIENT
  Age: 51 Year
  Sex: Female
  Weight: 57.6 kg

DRUGS (2)
  1. ESTRADIOL HEMIHYDRATE (PATCH) [Suspect]
     Dosage: 0.1 MG/DAY
     Route: 062
     Dates: start: 20140609, end: 20140609
  2. SYNTHROID [Concomitant]
     Indication: HYPOTHYROIDISM
     Dosage: 75 MCG/24HR, UNK
     Route: 048
     Dates: start: 1978

REACTIONS (3)
  - Rash [None]
  - Feeling hot [None]
  - Pruritus [None]
